FAERS Safety Report 9008941 (Version 3)
Quarter: 2013Q3

REPORT INFORMATION
  Report Type: Report from Study
  Country: FR (occurrence: FR)
  Receive Date: 20130111
  Receipt Date: 20130822
  Transmission Date: 20140515
  Serious: Yes (Death, Hospitalization)
  Sender: FDA-Public Use
  Company Number: FR-CELGENEUS-056-21880-13010177

PATIENT
  Age: 57 Year
  Sex: Female
  Weight: 61 kg

DRUGS (10)
  1. REVLIMID [Suspect]
     Indication: PLASMA CELL MYELOMA
     Dosage: 15 MILLIGRAM
     Route: 048
     Dates: start: 20110805
  2. REVLIMID [Suspect]
     Route: 048
     Dates: start: 201204
  3. REVLIMID [Suspect]
     Route: 048
     Dates: end: 20121202
  4. BORTEZOMIB [Suspect]
     Indication: PLASMA CELL MYELOMA
     Route: 065
     Dates: start: 20110805, end: 20120312
  5. DEXAMETHASONE [Suspect]
     Indication: PLASMA CELL MYELOMA
     Route: 065
     Dates: start: 20110805, end: 20120312
  6. STILNOX [Concomitant]
     Indication: INSOMNIA
     Route: 048
  7. INEXIUM [Concomitant]
     Indication: GASTROINTESTINAL DISORDER
     Route: 048
  8. ZELITREX [Concomitant]
     Indication: ANTIBIOTIC PROPHYLAXIS
     Route: 048
  9. CONTRAMAL [Concomitant]
     Indication: PAIN
     Route: 048
  10. DEBRIDAT [Concomitant]
     Indication: INTESTINAL HAEMORRHAGE
     Route: 048

REACTIONS (1)
  - Plasma cell myeloma [Fatal]
